FAERS Safety Report 8798673 (Version 2)
Quarter: 2013Q2

REPORT INFORMATION
  Report Type: Spontaneous
  Country: US (occurrence: US)
  Receive Date: 20120920
  Receipt Date: 20130506
  Transmission Date: 20140414
  Serious: Yes (Disabling, Other)
  Sender: FDA-Public Use
  Company Number: US-BAYER-2012-097101

PATIENT
  Age: 50 Year
  Sex: Male
  Weight: 111 kg

DRUGS (21)
  1. MAGNEVIST [Suspect]
     Indication: NUCLEAR MAGNETIC RESONANCE IMAGING
     Dosage: UNK
     Dates: start: 200712
  2. MAGNEVIST [Suspect]
     Indication: ANGIOGRAM
  3. OPTIMARK [Suspect]
     Indication: NUCLEAR MAGNETIC RESONANCE IMAGING
     Dosage: UNK
     Dates: start: 2003, end: 2008
  4. OPTIMARK [Suspect]
     Indication: ANGIOGRAM
     Dosage: UNK
     Dates: start: 2008
  5. OMNISCAN [Suspect]
     Indication: NUCLEAR MAGNETIC RESONANCE IMAGING
     Dosage: UNK
     Dates: start: 2003, end: 2008
  6. OMNISCAN [Suspect]
     Indication: ANGIOGRAM
  7. GADOLINIUM IN UNSPECIFIED DRUG [Suspect]
     Dosage: UNK
     Dates: start: 20030603, end: 20030603
  8. GADOLINIUM IN UNSPECIFIED DRUG [Suspect]
     Dosage: UNK
     Dates: start: 20060113, end: 20060113
  9. GADOLINIUM IN UNSPECIFIED DRUG [Suspect]
     Dosage: UNK
     Dates: start: 20060301, end: 20060301
  10. GADOLINIUM IN UNSPECIFIED DRUG [Suspect]
  11. CELLCEPT [Concomitant]
  12. PREDNISONE [Concomitant]
  13. DIGOXIN [Concomitant]
  14. METOPROLOL [Concomitant]
  15. CALCITRIOL [Concomitant]
  16. INSULIN [Concomitant]
  17. PLAVIX [Concomitant]
  18. ASPIRIN [Concomitant]
     Dosage: 81 MG, QD
     Route: 048
  19. LISINOPRIL [Concomitant]
  20. PHOSLO [Concomitant]
  21. NEPHROCAPS [Concomitant]

REACTIONS (15)
  - Nephrogenic systemic fibrosis [None]
  - Skin hypertrophy [None]
  - Gait disturbance [None]
  - Skin lesion [None]
  - Scab [None]
  - Pain [None]
  - Joint stiffness [None]
  - Skin induration [None]
  - Tendon disorder [None]
  - Muscular weakness [None]
  - Joint contracture [None]
  - Injury [None]
  - Pain [None]
  - Emotional distress [None]
  - Anhedonia [None]
